FAERS Safety Report 8991139 (Version 1)
Quarter: 2012Q4

REPORT INFORMATION
  Report Type: Spontaneous
  Country: US (occurrence: None)
  Receive Date: 20121227
  Receipt Date: 20121227
  Transmission Date: 20130627
  Serious: No
  Sender: FDA-Public Use
  Company Number: None

PATIENT
  Sex: Female

DRUGS (1)
  1. SILDENAFIL CITRATE [Suspect]
     Indication: PRIMARY PULMONARY HYPERTENSION
     Dosage: 20MG THREE TIMES A DAY BY MOUTH
     Route: 048
     Dates: start: 20121215

REACTIONS (5)
  - Dyspnoea [None]
  - Oxygen saturation decreased [None]
  - Chest pain [None]
  - Heart rate increased [None]
  - Product substitution issue [None]
